FAERS Safety Report 8550910-9 (Version None)
Quarter: 2012Q3

REPORT INFORMATION
  Report Type: 
  Country: None (occurrence: None)
  Receive Date: 20120730
  Receipt Date: 20120710
  Transmission Date: 20120928
  Serious: Yes (Death)
  Sender: FDA-Public Use
  Company Number: JP-BAYER-2012-075657

PATIENT
  Age: 66 Year
  Sex: Female

DRUGS (7)
  1. CEFOTIAM HYDROCHLORIDE [Suspect]
     Indication: ANTIBIOTIC THERAPY
     Dosage: DAILY DOSE 2 G
     Route: 042
     Dates: start: 20110819, end: 20110823
  2. SUTENT [Suspect]
     Indication: NEOPLASM MALIGNANT
     Dosage: DAILY DOSE 50 MG
     Route: 048
     Dates: start: 20110808, end: 20110822
  3. MOBIC [Suspect]
     Indication: ANALGESIC THERAPY
     Dosage: DAILY DOSE 10 MG
     Route: 048
     Dates: start: 20110813, end: 20110824
  4. CYTOTEC [Suspect]
     Indication: DYSPEPSIA
     Dosage: 200 MG, UNK
     Route: 048
     Dates: start: 20110721, end: 20110824
  5. PROCHLORPERAZINE [Suspect]
     Indication: VOMITING
     Dosage: DAILY DOSE 10 MG
     Route: 065
     Dates: start: 20110809, end: 20110824
  6. FENTANYL-100 [Suspect]
     Indication: ANALGESIC THERAPY
     Dosage: DAILY DOSE 2.1 MG
     Route: 061
     Dates: start: 20110822, end: 20110824
  7. NAPROXEN SODIUM [Suspect]
     Indication: PRODUCT USED FOR UNKNOWN INDICATION
     Dosage: 100 MG, UNK
     Route: 048
     Dates: start: 20110822, end: 20110825

REACTIONS (1)
  - TOXIC EPIDERMAL NECROLYSIS [None]
